FAERS Safety Report 7658622 (Version 2)
Quarter: 2012Q4

REPORT INFORMATION
  Report Type: Report from Study
  Country: US (occurrence: US)
  Receive Date: 20101105
  Receipt Date: 20120924
  Transmission Date: 20130627
  Serious: Yes (Death)
  Sender: FDA-Public Use
  Company Number: US-ABBOTT-10P-163-0683457-00

PATIENT
  Age: 61 None
  Sex: Female

DRUGS (2)
  1. HUMIRA [Suspect]
     Indication: CROHN^S DISEASE
     Dates: start: 20080512, end: 20080512
  2. HUMIRA [Suspect]

REACTIONS (5)
  - Crohn^s disease [Fatal]
  - Renal failure [Fatal]
  - Drug ineffective [Fatal]
  - Infection [Fatal]
  - Fungal infection [Fatal]
